FAERS Safety Report 23555537 (Version 1)
Quarter: 2024Q1

REPORT INFORMATION
  Report Type: Spontaneous
  Country: US (occurrence: US)
  Receive Date: 20240222
  Receipt Date: 20240222
  Transmission Date: 20240410
  Serious: Yes (Other)
  Sender: FDA-Public Use
  Company Number: US-LANTHEUS-LMI-2023-01127

PATIENT

DRUGS (1)
  1. DEFINITY [Suspect]
     Active Substance: PERFLUTREN
     Indication: Echocardiogram
     Dosage: 2 MILLILITRE (DILUTION DETAILS WERE NOT PROVIDED)
     Dates: start: 20230918, end: 20230918

REACTIONS (2)
  - Unresponsive to stimuli [Unknown]
  - Dizziness [Unknown]

NARRATIVE: CASE EVENT DATE: 20230918
